FAERS Safety Report 10149041 (Version 1)
Quarter: 2014Q2

REPORT INFORMATION
  Report Type: Spontaneous
  Country: US (occurrence: None)
  Receive Date: 20140430
  Receipt Date: 20140430
  Transmission Date: 20141212
  Serious: Yes (Hospitalization, Other)
  Sender: FDA-Public Use
  Company Number: None

PATIENT
  Age: 61 Year
  Sex: Male

DRUGS (2)
  1. VANCOMYCIN [Suspect]
     Indication: CELLULITIS
     Route: 042
     Dates: start: 201403, end: 20140310
  2. PIPERACILLIN/TAZOBACTAM [Suspect]
     Indication: SEPSIS
     Route: 042
     Dates: start: 20140307, end: 20140309

REACTIONS (2)
  - Blood creatinine increased [None]
  - Renal failure acute [None]
